FAERS Safety Report 6987489-9 (Version None)
Quarter: 2010Q3

REPORT INFORMATION
  Report Type: 
  Country: None (occurrence: None)
  Receive Date: 20100916
  Receipt Date: 20100910
  Transmission Date: 20110219
  Serious: Yes (Hospitalization, Other)
  Sender: FDA-Public Use
  Company Number: PHHY2010CA56948

PATIENT
  Sex: Female
  Weight: 68 kg

DRUGS (6)
  1. EXELON [Suspect]
     Indication: DEMENTIA ALZHEIMER'S TYPE
     Dosage: 10CM2 (9.5 MG/24 HOURS.)
     Route: 062
     Dates: end: 20100127
  2. ACTONEL [Concomitant]
     Dosage: ONCE A WEEK
  3. CELEXA [Concomitant]
     Dosage: 20 DAILY
  4. PANTOLOC [Concomitant]
     Dosage: 40 DAILY
  5. CLONAZEPAM [Concomitant]
  6. ARICEPT [Concomitant]
     Indication: DEMENTIA ALZHEIMER'S TYPE
     Dosage: 10 MG
     Dates: start: 20080814, end: 20100209

REACTIONS (4)
  - APATHY [None]
  - DECREASED APPETITE [None]
  - SOMNOLENCE [None]
  - WEIGHT DECREASED [None]
